FAERS Safety Report 9365625 (Version 1)
Quarter: 2013Q2

REPORT INFORMATION
  Report Type: Spontaneous
  Country: US (occurrence: None)
  Receive Date: 20130624
  Receipt Date: 20130624
  Transmission Date: 20140414
  Serious: Yes (Other)
  Sender: FDA-Public Use
  Company Number: None

PATIENT
  Age: 16 Year
  Sex: Female

DRUGS (1)
  1. LEVOTHYROXINE [Suspect]
     Indication: HYPOTHYROIDISM
     Dosage: 75 MCG  ONE TABLET ONCE DAILY ORALLY
     Route: 048
     Dates: start: 2004

REACTIONS (2)
  - Anti-thyroid antibody positive [None]
  - Product substitution issue [None]
